FAERS Safety Report 8026792-0 (Version None)
Quarter: 2011Q4

REPORT INFORMATION
  Report Type: 
  Country: None (occurrence: None)
  Receive Date: 20111130
  Receipt Date: 20110705
  Transmission Date: 20120403
  Serious: Yes (Hospitalization, Other)
  Sender: FDA-Public Use
  Company Number: US200910005441

PATIENT
  Sex: Male
  Weight: 114.3 kg

DRUGS (3)
  1. EXENATIDE (EXENATIDE PEN) [Concomitant]
  2. BYETTA [Suspect]
     Dates: start: 20080601, end: 20080805
  3. GLYBURIDE [Concomitant]

REACTIONS (3)
  - RENAL FAILURE [None]
  - VOMITING [None]
  - DIARRHOEA [None]
